FAERS Safety Report 7279342-0 (Version None)
Quarter: 2011Q1

REPORT INFORMATION
  Report Type: 
  Country: None (occurrence: None)
  Receive Date: 20110207
  Receipt Date: 20110128
  Transmission Date: 20110831
  Serious: Yes (Hospitalization)
  Sender: FDA-Public Use
  Company Number: PHHO2010DE17769

PATIENT
  Sex: Male
  Weight: 79.2 kg

DRUGS (17)
  1. TORSEMIDE [Concomitant]
     Indication: OEDEMA
  2. ALDACTONE [Concomitant]
     Indication: OEDEMA
  3. ALLOPURINOL [Concomitant]
     Indication: HYPERURICAEMIA
  4. DIURETICS [Concomitant]
  5. MARCUMAR [Concomitant]
  6. GLUCOBAY [Concomitant]
     Indication: DIABETES MELLITUS
  7. MAGNESIUM VERLA - FOR INJECTION [Concomitant]
     Indication: MUSCLE SPASMS
  8. SILDENAFIL [Concomitant]
     Indication: PULMONARY ARTERIAL HYPERTENSION
  9. XIPAMIDE [Concomitant]
     Indication: HYPERTENSION
  10. VENTAVIS [Concomitant]
     Indication: PULMONARY ARTERIAL HYPERTENSION
  11. NEBIVOLOL HCL [Concomitant]
     Indication: HYPERTONIA
  12. SYMBICORT [Concomitant]
     Indication: BRONCHIAL HYPERREACTIVITY
  13. PRAVASTATIN [Concomitant]
     Indication: HYPERCHOLESTEROLAEMIA
  14. STI571/CGP57148B [Suspect]
     Indication: PULMONARY ARTERIAL HYPERTENSION
     Dosage: DOSE BLIND
     Route: 048
     Dates: start: 20100401, end: 20101119
  15. TRACLEER [Concomitant]
     Indication: PULMONARY ARTERIAL HYPERTENSION
  16. OXYGEN [Concomitant]
     Indication: PULMONARY ARTERIAL HYPERTENSION
  17. BETA BLOCKING AGENTS [Concomitant]

REACTIONS (6)
  - MALAISE [None]
  - HYPOTENSION [None]
  - DYSPNOEA EXERTIONAL [None]
  - DIZZINESS [None]
  - DISEASE PROGRESSION [None]
  - HYPOXIA [None]
